FAERS Safety Report 8533848-2 (Version None)
Quarter: 2012Q3

REPORT INFORMATION
  Report Type: 
  Country: None (occurrence: None)
  Receive Date: 20120724
  Receipt Date: 20120710
  Transmission Date: 20120928
  Serious: Yes (Hospitalization, Other)
  Sender: FDA-Public Use
  Company Number: RO-ROCHE-1086517

PATIENT
  Age: 55 Year
  Sex: Female

DRUGS (2)
  1. PEGINTERFERON ALFA-2A [Suspect]
     Indication: HEPATITIS C
     Dates: start: 20081201, end: 20090601
  2. RIBAVIRIN [Suspect]
     Indication: HEPATITIS C
     Dates: start: 20081201, end: 20090601

REACTIONS (4)
  - GASTROINTESTINAL HAEMORRHAGE [None]
  - SPONTANEOUS HAEMATOMA [None]
  - ACQUIRED HAEMOPHILIA WITH ANTI FVIII, XI, OR XIII [None]
  - HAEMATOMA [None]
